FAERS Safety Report 4461104-0 (Version None)
Quarter: 2004Q3

REPORT INFORMATION
  Report Type: 
  Country: None (occurrence: None)
  Receive Date: 20040928
  Receipt Date: 20040922
  Transmission Date: 20050211
  Serious: Yes (Hospitalization)
  Sender: FDA-Public Use
  Company Number: 200413527FR

PATIENT
  Age: 75 Year
  Sex: Female

DRUGS (2)
  1. LASIX [Suspect]
     Route: 042
  2. ALDACTONE [Suspect]
     Indication: CARDIAC FAILURE
     Route: 048

REACTIONS (8)
  - CONFUSIONAL STATE [None]
  - DEHYDRATION [None]
  - DISORIENTATION [None]
  - HYPERTHERMIA [None]
  - HYPONATRAEMIA [None]
  - INCOHERENT [None]
  - PYELONEPHRITIS [None]
  - SOMNOLENCE [None]
